FAERS Safety Report 4271786-4 (Version None)
Quarter: 2004Q1

REPORT INFORMATION
  Report Type: 
  Country: None (occurrence: None)
  Receive Date: 20040115
  Receipt Date: 20040113
  Transmission Date: 20041129
  Serious: Yes (Hospitalization)
  Sender: FDA-Public Use
  Company Number: US-GLAXOSMITHKLINE-A0492877A

PATIENT
  Age: 50 Year
  Sex: Female

DRUGS (11)
  1. HYCAMTIN [Suspect]
     Dosage: 3MGM2 WEEKLY
     Route: 042
     Dates: start: 20040105
  2. ATIVAN [Concomitant]
  3. ZOLOFT [Concomitant]
  4. DURAGESIC [Concomitant]
  5. OXYCONTIN [Concomitant]
  6. OXYIR [Concomitant]
  7. PHENERGAN HCL [Concomitant]
  8. REGLAN [Concomitant]
  9. PERI-COLACE [Concomitant]
  10. VASOTEC [Concomitant]
  11. BUMEX [Concomitant]

REACTIONS (2)
  - BLOOD CREATININE INCREASED [None]
  - ELECTROLYTE IMBALANCE [None]
